FAERS Safety Report 12747971 (Version 2)
Quarter: 2016Q3

REPORT INFORMATION
  Report Type: Spontaneous
  Country: US (occurrence: US)
  Receive Date: 20160915
  Receipt Date: 20160923
  Transmission Date: 20161109
  Serious: Yes (Hospitalization, Other)
  Sender: FDA-Public Use
  Company Number: US-ASTELLAS-2016US032765

PATIENT
  Sex: Male

DRUGS (1)
  1. XTANDI [Suspect]
     Active Substance: ENZALUTAMIDE
     Indication: PROSTATE CANCER
     Route: 048
     Dates: start: 20160803

REACTIONS (15)
  - Chest discomfort [Unknown]
  - Skin burning sensation [Not Recovered/Not Resolved]
  - Asthenia [Unknown]
  - Cyst [Unknown]
  - Weight decreased [Unknown]
  - Balance disorder [Not Recovered/Not Resolved]
  - Muscular weakness [Not Recovered/Not Resolved]
  - Vomiting [Unknown]
  - Back pain [Not Recovered/Not Resolved]
  - Spinal fracture [Unknown]
  - Pain [Not Recovered/Not Resolved]
  - Decreased appetite [Unknown]
  - Nausea [Unknown]
  - Ageusia [Unknown]
  - Fatigue [Not Recovered/Not Resolved]
